FAERS Safety Report 9434404 (Version 1)
Quarter: 2013Q3

REPORT INFORMATION
  Report Type: Spontaneous
  Country: US (occurrence: None)
  Receive Date: 20130731
  Receipt Date: 20130731
  Transmission Date: 20140515
  Serious: No
  Sender: FDA-Public Use
  Company Number: None

PATIENT
  Age: 82 Year
  Sex: Male

DRUGS (8)
  1. AMOXICILLIN [Suspect]
     Indication: TOOTH INFECTION
     Route: 048
     Dates: start: 20130606, end: 20130608
  2. AMOXICILLIN [Suspect]
     Indication: BACTERIAL INFECTION
     Route: 048
     Dates: start: 20130606, end: 20130608
  3. OXYBUTYNIN [Concomitant]
  4. LOSARTAN [Concomitant]
  5. CRESTOR [Concomitant]
  6. ASPIRIN [Concomitant]
  7. GLOCOSAMINE [Concomitant]
  8. FISH OIL [Concomitant]

REACTIONS (4)
  - Diarrhoea [None]
  - Decreased appetite [None]
  - Drug ineffective [None]
  - Hypophagia [None]
